FAERS Safety Report 12139952 (Version 1)
Quarter: 2016Q1

REPORT INFORMATION
  Report Type: Spontaneous
  Country: US (occurrence: None)
  Receive Date: 20160302
  Receipt Date: 20160302
  Transmission Date: 20160526
  Serious: Yes (Disabling)
  Sender: FDA-Public Use
  Company Number: None

PATIENT
  Age: 24 Year
  Sex: Female
  Weight: 92.08 kg

DRUGS (3)
  1. ALBUTEROL SULFATE. [Concomitant]
     Active Substance: ALBUTEROL SULFATE
  2. NASAL EXTRA MOISTURIZING [Suspect]
     Active Substance: OXYMETAZOLINE HYDROCHLORIDE
     Indication: PULMONARY CONGESTION
     Dosage: 3 SPRAYS EVERY 10-12 HOURS.  TWICE DAILY  NASAL.  INTO THE NOSE
     Route: 045
     Dates: start: 20160229, end: 20160229
  3. BENZONTATE [Concomitant]

REACTIONS (3)
  - Anosmia [None]
  - Quality of life decreased [None]
  - Ageusia [None]

NARRATIVE: CASE EVENT DATE: 20160301
